FAERS Safety Report 5919362-9 (Version None)
Quarter: 2008Q4

REPORT INFORMATION
  Report Type: 
  Country: None (occurrence: None)
  Receive Date: 20081015
  Receipt Date: 20081010
  Transmission Date: 20090506
  Serious: Yes (Death)
  Sender: FDA-Public Use
  Company Number: A0752038A

PATIENT
  Age: 80 Year
  Sex: Male
  Weight: 50 kg

DRUGS (1)
  1. SERETIDE [Suspect]
     Indication: EMPHYSEMA
     Route: 055
     Dates: start: 20061101, end: 20071101

REACTIONS (1)
  - CARDIAC FAILURE [None]
